FAERS Safety Report 7407087-2 (Version None)
Quarter: 2011Q2

REPORT INFORMATION
  Report Type: 
  Country: None (occurrence: None)
  Receive Date: 20110411
  Receipt Date: 20110327
  Transmission Date: 20111010
  Serious: Yes (Life-Threatening)
  Sender: FDA-Public Use
  Company Number: IN-BAUSCH-2011BL002168

PATIENT
  Age: 2 Year
  Sex: Male
  Weight: 13 kg

DRUGS (10)
  1. ATRACURIUM BESYLATE [Concomitant]
     Indication: ANAESTHESIA
     Route: 042
  2. SEVOFLURANE [Concomitant]
     Route: 047
  3. NITROUS OXIDE/OXYGEN [Concomitant]
     Indication: ANAESTHESIA
  4. SEVOFLURANE 1.5% [Concomitant]
     Indication: ANAESTHESIA
  5. LASIX [Concomitant]
     Route: 042
  6. PHENYLEPHRINE HCL [Suspect]
     Indication: MYDRIASIS
     Route: 047
  7. FENTANYL CITRATE [Concomitant]
     Route: 042
  8. GLYCOPYRROLATE [Concomitant]
     Route: 030
  9. HYDROCORTISONE [Concomitant]
     Route: 042
  10. TRICLOFOS [Concomitant]

REACTIONS (2)
  - PULMONARY OEDEMA [None]
  - PROCEDURAL HYPERTENSION [None]
